FAERS Safety Report 18036423 (Version 2)
Quarter: 2020Q3

REPORT INFORMATION
  Report Type: Report from Study
  Country: AU (occurrence: AU)
  Receive Date: 20200717
  Receipt Date: 20200902
  Transmission Date: 20201103
  Serious: Yes (Hospitalization)
  Sender: FDA-Public Use
  Company Number: AU-TOLMAR, INC.-20AU021900

PATIENT
  Sex: Male

DRUGS (1)
  1. ELIGARD [Suspect]
     Active Substance: LEUPROLIDE ACETATE
     Indication: PROSTATE CANCER
     Dosage: 22.5 MG, Q 3 MONTH
     Route: 065

REACTIONS (5)
  - Metastases to bone [Not Recovered/Not Resolved]
  - Depressed mood [Unknown]
  - Depression [Unknown]
  - Crying [Unknown]
  - Bone lesion [Not Recovered/Not Resolved]
